FAERS Safety Report 17316337 (Version 1)
Quarter: 2020Q1

REPORT INFORMATION
  Report Type: Spontaneous
  Country: GB (occurrence: GB)
  Receive Date: 20200124
  Receipt Date: 20200124
  Transmission Date: 20200409
  Serious: Yes (Other)
  Sender: FDA-Public Use
  Company Number: GB-JNJFOC-20200127677

PATIENT
  Age: 41 Year
  Sex: Female
  Weight: 69.39 kg

DRUGS (7)
  1. TOPAMAX [Suspect]
     Active Substance: TOPIRAMATE
     Indication: HEADACHE
     Route: 048
  2. MONTELUKAST SODIUM. [Concomitant]
     Active Substance: MONTELUKAST SODIUM
     Indication: PRODUCT USED FOR UNKNOWN INDICATION
     Route: 065
  3. COLESEVELAM [Concomitant]
     Active Substance: COLESEVELAM
     Indication: PRODUCT USED FOR UNKNOWN INDICATION
     Route: 065
  4. NASONEX [Concomitant]
     Active Substance: MOMETASONE FUROATE
     Indication: PRODUCT USED FOR UNKNOWN INDICATION
     Route: 065
  5. CETIRIZINE DIHYDROCHLORIDE [Concomitant]
     Active Substance: CETIRIZINE HYDROCHLORIDE
     Indication: PRODUCT USED FOR UNKNOWN INDICATION
     Route: 065
  6. BECLOMETASONE DIPROPIONATE W/FORMOTEROL FUMAR [Concomitant]
     Active Substance: BECLOMETHASONE\FORMOTEROL
     Route: 065
  7. MST CONTINUS [Concomitant]
     Active Substance: MORPHINE SULFATE
     Indication: PRODUCT USED FOR UNKNOWN INDICATION
     Route: 065

REACTIONS (4)
  - Breath odour [Recovering/Resolving]
  - Nausea [Recovering/Resolving]
  - Anxiety [Recovered/Resolved]
  - Depressed mood [Recovered/Resolved]
